FAERS Safety Report 26143544 (Version 1)
Quarter: 2025Q4

REPORT INFORMATION
  Report Type: Spontaneous
  Country: BR (occurrence: BR)
  Receive Date: 20251211
  Receipt Date: 20251211
  Transmission Date: 20260118
  Serious: Yes (Other)
  Sender: TAKEDA
  Company Number: BR-LUNDBECK-DKLU4022561

PATIENT
  Age: 65 Year
  Sex: Male

DRUGS (2)
  1. VORTIOXETINE [Suspect]
     Active Substance: VORTIOXETINE
     Indication: Product used for unknown indication
     Dosage: 5 MILLIGRAM
  2. VORTIOXETINE [Suspect]
     Active Substance: VORTIOXETINE
     Dosage: 15 MILLIGRAM

REACTIONS (1)
  - Erectile dysfunction [Unknown]
